FAERS Safety Report 20910728 (Version 1)
Quarter: 2022Q2

REPORT INFORMATION
  Report Type: Spontaneous
  Country: US (occurrence: None)
  Receive Date: 20220602
  Receipt Date: 20220602
  Transmission Date: 20220720
  Serious: No
  Sender: FDA-Public Use
  Company Number: None

PATIENT
  Age: 62 Year
  Sex: Female

DRUGS (1)
  1. CAPECITABINE [Suspect]
     Active Substance: CAPECITABINE
     Dosage: 1150MG BID ORAL?
     Route: 048
     Dates: start: 202203, end: 202204

REACTIONS (6)
  - Muscle spasms [None]
  - Dyspnoea [None]
  - Therapy change [None]
  - Muscle spasms [None]
  - Neuropathy peripheral [None]
  - Taste disorder [None]

NARRATIVE: CASE EVENT DATE: 20220421
